FAERS Safety Report 12800983 (Version 4)
Quarter: 2019Q2

REPORT INFORMATION
  Report Type: Report from Study
  Country: US (occurrence: US)
  Receive Date: 20161003
  Receipt Date: 20190502
  Transmission Date: 20190711
  Serious: No
  Sender: FDA-Public Use
  Company Number: PHEH2016US024869

PATIENT
  Sex: Female

DRUGS (1)
  1. ILARIS [Suspect]
     Active Substance: CANAKINUMAB
     Indication: STILL^S DISEASE
     Dosage: 300 MG, EVERY 4 WEEKS
     Route: 058

REACTIONS (4)
  - Malaise [Unknown]
  - Ill-defined disorder [Unknown]
  - Influenza [Unknown]
  - Inappropriate schedule of product administration [Unknown]
